FAERS Safety Report 11637949 (Version 1)
Quarter: 2015Q4

REPORT INFORMATION
  Report Type: Spontaneous
  Country: SE (occurrence: SE)
  Receive Date: 20151016
  Receipt Date: 20151016
  Transmission Date: 20160304
  Serious: Yes (Hospitalization)
  Sender: FDA-Public Use
  Company Number: SE-TEVA-600420ISR

PATIENT
  Age: 44 Year
  Sex: Male

DRUGS (2)
  1. HYDROCHLOROTHIAZIDE. [Suspect]
     Active Substance: HYDROCHLOROTHIAZIDE
     Route: 048
  2. LOSARTAN. [Suspect]
     Active Substance: LOSARTAN
     Route: 048

REACTIONS (1)
  - Dyspnoea [Recovered/Resolved]
